FAERS Safety Report 9643745 (Version 2)
Quarter: 2013Q4

REPORT INFORMATION
  Report Type: Report from Study
  Country: KR (occurrence: KR)
  Receive Date: 20131024
  Receipt Date: 20131024
  Transmission Date: 20140711
  Serious: Yes (Hospitalization)
  Sender: FDA-Public Use
  Company Number: KR-BAYER-2012-074707

PATIENT
  Age: 56 Year
  Sex: 0
  Weight: 59.4 kg

DRUGS (4)
  1. NEAXAVAR [Suspect]
     Indication: HEPATOCELLULAR CARCINOMA
     Dosage: DAILY DOSE 800 MG
     Route: 048
     Dates: start: 20120529, end: 20120609
  2. NEAXAVAR [Suspect]
     Indication: HEPATOCELLULAR CARCINOMA
     Dosage: DAILY DOSE 800 MG
     Route: 048
     Dates: start: 20120611, end: 20120717
  3. B-COMPLEX [VITAMIN B NOS] [Concomitant]
     Dosage: 1 TAB
     Dates: start: 20120625
  4. URSA [Concomitant]
     Dosage: 3 TAB
     Dates: start: 20120625

REACTIONS (1)
  - Abdominal cavity drainage [Recovered/Resolved]
